FAERS Safety Report 25951146 (Version 2)
Quarter: 2025Q4

REPORT INFORMATION
  Report Type: Spontaneous
  Country: MX (occurrence: MX)
  Receive Date: 20251023
  Receipt Date: 20251201
  Transmission Date: 20260118
  Serious: Yes (Other)
  Sender: ROCHE
  Company Number: MX-ROCHE-10000414431

PATIENT
  Age: 41 Year
  Sex: Female
  Weight: 74 kg

DRUGS (1)
  1. KADCYLA [Suspect]
     Active Substance: ADO-TRASTUZUMAB EMTANSINE
     Indication: Breast cancer
     Dosage: ONGOING: YES.
     Route: 042
     Dates: start: 20240101

REACTIONS (1)
  - Lymphoma [Recovering/Resolving]

NARRATIVE: CASE EVENT DATE: 20241001
